FAERS Safety Report 13418409 (Version 2)
Quarter: 2017Q2

REPORT INFORMATION
  Report Type: Report from Study
  Country: JP (occurrence: JP)
  Receive Date: 20170407
  Receipt Date: 20170613
  Transmission Date: 20170830
  Serious: Yes (Hospitalization, Disabling)
  Sender: FDA-Public Use
  Company Number: JP-AMGEN-JPNCT2017053658

PATIENT
  Age: 78 Year
  Sex: Male
  Weight: 47 kg

DRUGS (19)
  1. MARZULENE-S [Suspect]
     Active Substance: SODIUM GUALENATE
     Indication: GASTRITIS
     Dosage: 0.5 G, TID
     Route: 048
     Dates: start: 20100427
  2. AMLODIPINE [Suspect]
     Active Substance: AMLODIPINE BESYLATE
     Indication: HYPERTENSION
     Dosage: 5 MG, QD
     Route: 048
     Dates: start: 20161024
  3. DARBEPOETIN ALFA [Suspect]
     Active Substance: DARBEPOETIN ALFA
     Dosage: 40 MUG, Q3WK
     Route: 042
     Dates: start: 20151207, end: 20151228
  4. ACECOL [Suspect]
     Active Substance: TEMOCAPRIL HYDROCHLORIDE
     Indication: HYPERTENSION
     Dosage: 1 MG, QD
     Route: 048
  5. CANDESARTAN. [Suspect]
     Active Substance: CANDESARTAN
     Indication: HYPERTENSION
     Dosage: 2 MG, QD
     Route: 048
     Dates: start: 20081028
  6. DARBEPOETIN ALFA [Suspect]
     Active Substance: DARBEPOETIN ALFA
     Dosage: 40 MUG, Q4WK
     Route: 042
     Dates: start: 20150810, end: 20151102
  7. AMLODIPINE [Suspect]
     Active Substance: AMLODIPINE BESYLATE
     Dosage: 2.5 MG, QD
     Route: 048
     Dates: start: 20161127
  8. DARBEPOETIN ALFA [Suspect]
     Active Substance: DARBEPOETIN ALFA
     Dosage: 120 MUG, QD
     Route: 042
     Dates: start: 20160926, end: 20160926
  9. FEBURIC [Suspect]
     Active Substance: FEBUXOSTAT
     Indication: HYPERURICAEMIA
     Dosage: 10 MG, QD
     Route: 048
     Dates: start: 20170116
  10. ROCALTROL [Suspect]
     Active Substance: CALCITRIOL
     Indication: HYPERPARATHYROIDISM SECONDARY
     Dosage: 0.25 MUG, QD
     Route: 048
     Dates: start: 20170313
  11. DARBEPOETIN ALFA [Suspect]
     Active Substance: DARBEPOETIN ALFA
     Indication: CHRONIC KIDNEY DISEASE
     Dosage: 30 MUG, QD
     Route: 042
     Dates: start: 20150713, end: 20150713
  12. DARBEPOETIN ALFA [Suspect]
     Active Substance: DARBEPOETIN ALFA
     Dosage: 40 MUG, Q4WK
     Route: 042
     Dates: start: 20160125, end: 20160222
  13. DARBEPOETIN ALFA [Suspect]
     Active Substance: DARBEPOETIN ALFA
     Dosage: 60 MUG, Q4WK
     Route: 042
     Dates: start: 20160328, end: 20160425
  14. DARBEPOETIN ALFA [Suspect]
     Active Substance: DARBEPOETIN ALFA
     Dosage: 180 MUG, Q4WK
     Route: 042
     Dates: start: 20161024, end: 20161121
  15. CARNACULIN [Suspect]
     Active Substance: KALLIDINOGENASE
     Indication: PERIPHERAL VASCULAR DISORDER
     Dosage: 50 IU, TID
     Route: 048
     Dates: start: 20150515
  16. FUROSEMIDE. [Suspect]
     Active Substance: FUROSEMIDE
     Indication: OEDEMA DUE TO RENAL DISEASE
     Dosage: 40 MG, QD
     Route: 048
     Dates: start: 20170116
  17. MERISLON [Suspect]
     Active Substance: BETAHISTINE MESILATE
     Indication: DIZZINESS
     Dosage: 12 MG, TID
     Route: 048
     Dates: start: 20150515
  18. DARBEPOETIN ALFA [Suspect]
     Active Substance: DARBEPOETIN ALFA
     Dosage: 120 MUG, Q4WK
     Route: 042
     Dates: start: 20160523, end: 20160620
  19. SODIUM BICARBONATE. [Suspect]
     Active Substance: SODIUM BICARBONATE
     Indication: ACIDOSIS
     Dosage: 0.5 G, TID
     Route: 048
     Dates: start: 20170227, end: 20170319

REACTIONS (4)
  - Haemodialysis [Recovered/Resolved with Sequelae]
  - Hyperphosphataemia [Not Recovered/Not Resolved]
  - Hyperuricaemia [Not Recovered/Not Resolved]
  - Muscle spasms [Recovering/Resolving]

NARRATIVE: CASE EVENT DATE: 20151207
